FAERS Safety Report 6357604-9 (Version None)
Quarter: 2009Q3

REPORT INFORMATION
  Report Type: 
  Country: None (occurrence: None)
  Receive Date: 20090916
  Receipt Date: 20090908
  Transmission Date: 20100115
  Serious: Yes (Hospitalization)
  Sender: FDA-Public Use
  Company Number: PHHO2009TW08879

PATIENT
  Sex: Female
  Weight: 53.4 kg

DRUGS (4)
  1. RAD 666 RAD+TAB+CMAS [Suspect]
     Indication: METASTATIC GASTRIC CANCER
     Dosage: 10MG
     Route: 048
     Dates: start: 20090618, end: 20090702
  2. CISPLATIN [Concomitant]
  3. FLUOROURACIL [Concomitant]
  4. LEUCOVORIN CALCIUM [Concomitant]

REACTIONS (7)
  - BACTERIA SPUTUM IDENTIFIED [None]
  - BLOOD CULTURE POSITIVE [None]
  - FUNGAL INFECTION [None]
  - MECHANICAL ILEUS [None]
  - PLEURAL EFFUSION [None]
  - SEPSIS [None]
  - X-RAY OF PELVIS AND HIP ABNORMAL [None]
